FAERS Safety Report 6051676-7 (Version None)
Quarter: 2009Q1

REPORT INFORMATION
  Report Type: 
  Country: None (occurrence: None)
  Receive Date: 20090121
  Receipt Date: 20090121
  Transmission Date: 20090719
  Serious: Yes (Other)
  Sender: FDA-Public Use
  Company Number: None

PATIENT
  Age: 78 Year
  Sex: Female
  Weight: 65.318 kg

DRUGS (16)
  1. ARAVA [Suspect]
     Indication: RHEUMATOID ARTHRITIS
     Dosage: 3 20MG TABS 1X DAY FOR 3 DAYS PO THEN I 20 MG TAB
     Route: 048
  2. PREVACID [Concomitant]
  3. LASIX [Concomitant]
  4. LORATADINE [Concomitant]
  5. RANITIDINE [Concomitant]
  6. PREDNISONE [Concomitant]
  7. TRAMADOL HCL [Concomitant]
  8. SINGULAIR [Concomitant]
  9. ENBREL [Concomitant]
  10. REQUIP [Concomitant]
  11. AMBIEN [Concomitant]
  12. TYLENOL [Concomitant]
  13. MULTIVITIMIN [Concomitant]
  14. CALCIUM [Concomitant]
  15. OCCUVITE [Concomitant]
  16. CLONAZEPAM [Concomitant]

REACTIONS (3)
  - PRURITUS [None]
  - RASH [None]
  - URTICARIA [None]
